FAERS Safety Report 23921397 (Version 2)
Quarter: 2024Q3

REPORT INFORMATION
  Report Type: Spontaneous
  Country: BR (occurrence: None)
  Receive Date: 20240530
  Receipt Date: 20240703
  Transmission Date: 20241017
  Serious: Yes (Hospitalization, Other)
  Sender: ASTRAZENECA
  Company Number: 2024A122299

PATIENT
  Sex: Female

DRUGS (3)
  1. LYNPARZA [Suspect]
     Active Substance: OLAPARIB
     Indication: Carcinoid tumour of the mesentery
     Dosage: 3 TABLETS IN THE MORNING AND 3 TABLETS IN THE EVENING
     Route: 048
     Dates: end: 20240522
  2. LYNPARZA [Suspect]
     Active Substance: OLAPARIB
     Indication: Carcinoid tumour of the mesentery
     Dosage: 3 TABLETS IN THE MORNING AND 3 TABLETS IN THE EVENING
     Route: 048
  3. PIOGLITAZONE HYDROCHLORIDE [Concomitant]
     Active Substance: PIOGLITAZONE HYDROCHLORIDE

REACTIONS (8)
  - Cataract [Unknown]
  - Type 2 diabetes mellitus [Unknown]
  - Arrhythmia [Unknown]
  - Thyroid disorder [Unknown]
  - Urinary tract infection [Unknown]
  - Abdominal pain [Unknown]
  - Hypertension [Unknown]
  - Off label use [Unknown]
